FAERS Safety Report 6789373-2 (Version None)
Quarter: 2010Q2

REPORT INFORMATION
  Report Type: 
  Country: None (occurrence: None)
  Receive Date: 20100623
  Receipt Date: 20090610
  Transmission Date: 20101027
  Serious: Yes (Other)
  Sender: FDA-Public Use
  Company Number: US-PFIZER INC-2008055119

PATIENT
  Age: 64 Year
  Sex: Female

DRUGS (4)
  1. MEDROXYPROGESTERONE ACETATE [Suspect]
     Indication: HORMONE REPLACEMENT THERAPY
     Dosage: UNK
     Route: 048
     Dates: start: 19820101, end: 20020101
  2. PREMARIN [Suspect]
     Indication: HORMONE REPLACEMENT THERAPY
     Dosage: UNK
     Dates: start: 19820101, end: 20020101
  3. AMITRIPTYLINE [Concomitant]
     Indication: PAIN
     Dosage: UNK
     Dates: start: 19880101
  4. AMITRIPTYLINE [Concomitant]
     Indication: SLEEP DISORDER

REACTIONS (1)
  - BREAST CANCER [None]
